FAERS Safety Report 4648933-5 (Version None)
Quarter: 2005Q2

REPORT INFORMATION
  Report Type: 
  Country: None (occurrence: None)
  Receive Date: 20050429
  Receipt Date: 20050401
  Transmission Date: 20051028
  Serious: Yes (Other)
  Sender: FDA-Public Use
  Company Number: US-GLAXOSMITHKLINE-A0552290A

PATIENT
  Age: 80 Year
  Sex: Male
  Weight: 59 kg

DRUGS (8)
  1. CITRUCEL CLEAR MIX [Suspect]
     Indication: CONSTIPATION
     Route: 048
     Dates: start: 20041201, end: 20050301
  2. ENSURE [Concomitant]
  3. ATIVAN [Concomitant]
  4. THYROID TAB [Concomitant]
  5. PROTONIX [Concomitant]
  6. REMERON [Concomitant]
  7. TYLENOL [Concomitant]
     Indication: DRUG USE FOR UNKNOWN INDICATION
  8. MILK OF MAGNESIA [Concomitant]
     Indication: DRUG USE FOR UNKNOWN INDICATION
     Dates: start: 20050414, end: 20050414

REACTIONS (8)
  - ABDOMINAL PAIN UPPER [None]
  - CONSTIPATION [None]
  - DIZZINESS [None]
  - DRUG INEFFECTIVE [None]
  - SKIN DISCOLOURATION [None]
  - SYNCOPE [None]
  - TREMOR [None]
  - VOMITING [None]
